FAERS Safety Report 4577516-0 (Version None)
Quarter: 2005Q1

REPORT INFORMATION
  Report Type: 
  Country: None (occurrence: None)
  Receive Date: 20050208
  Receipt Date: 20050201
  Transmission Date: 20050727
  Serious: Yes (Death, Hospitalization)
  Sender: FDA-Public Use
  Company Number: 200510081BNE

PATIENT
  Age: 82 Year
  Sex: Male

DRUGS (1)
  1. ASPIRIN [Suspect]
     Indication: HEADACHE
     Dosage: PRN, ORAL
     Route: 048

REACTIONS (5)
  - ANAEMIA [None]
  - ISCHAEMIC CEREBRAL INFARCTION [None]
  - MELAENA [None]
  - MYOCARDIAL INFARCTION [None]
  - WEIGHT DECREASED [None]
